FAERS Safety Report 17120566 (Version 2)
Quarter: 2019Q4

REPORT INFORMATION
  Report Type: Spontaneous
  Country: US (occurrence: US)
  Receive Date: 20191206
  Receipt Date: 20191216
  Transmission Date: 20200122
  Serious: Yes (Hospitalization)
  Sender: FDA-Public Use
  Company Number: US-009507513-1912USA001692

PATIENT
  Sex: Male

DRUGS (1)
  1. BELSOMRA [Suspect]
     Active Substance: SUVOREXANT
     Dosage: 20 MILLIGRAM, QHS
     Route: 048

REACTIONS (3)
  - Product quality issue [Unknown]
  - Adverse event [Unknown]
  - Product dose omission [Unknown]

NARRATIVE: CASE EVENT DATE: 2017
